FAERS Safety Report 13237749 (Version 1)
Quarter: 2017Q1

REPORT INFORMATION
  Report Type: Spontaneous
  Country: RO (occurrence: RO)
  Receive Date: 20170216
  Receipt Date: 20170216
  Transmission Date: 20170428
  Serious: Yes (Hospitalization)
  Sender: FDA-Public Use
  Company Number: RO-ABBVIE-17K-135-1869561-00

PATIENT
  Age: 37 Year
  Sex: Male
  Weight: 72 kg

DRUGS (2)
  1. HUMIRA [Suspect]
     Active Substance: ADALIMUMAB
     Indication: ANKYLOSING SPONDYLITIS
     Route: 058
     Dates: start: 20120430
  2. GADOLINIUM [Concomitant]
     Active Substance: GADOLINIUM
     Indication: NUCLEAR MAGNETIC RESONANCE IMAGING
     Dosage: 0.2 MMOL/KG
     Dates: start: 20161229, end: 20161229

REACTIONS (7)
  - Myocardial fibrosis [Recovered/Resolved with Sequelae]
  - Ventricular arrhythmia [Unknown]
  - Mitral valve prolapse [Unknown]
  - Palpitations [Unknown]
  - Ventricular dyskinesia [Unknown]
  - Mitral valve incompetence [Unknown]
  - Lipoma [Unknown]

NARRATIVE: CASE EVENT DATE: 20161229
